FAERS Safety Report 5780235-6 (Version None)
Quarter: 2008Q2

REPORT INFORMATION
  Report Type: 
  Country: None (occurrence: None)
  Receive Date: 20080620
  Receipt Date: 20080610
  Transmission Date: 20081010
  Serious: Yes (Other)
  Sender: FDA-Public Use
  Company Number: PHHY2008FR10738

PATIENT
  Sex: Female

DRUGS (3)
  1. ZOLEDRONIC ACID [Suspect]
     Indication: OSTEOPOROSIS
     Dosage: 5 MG, UNK
     Route: 042
     Dates: start: 20080609
  2. OMEPRAZOLE [Concomitant]
     Indication: OESOPHAGITIS
     Route: 048
  3. PANTOPRAZOLE SODIUM [Concomitant]
     Indication: OESOPHAGITIS
     Route: 048

REACTIONS (3)
  - MELAENA [None]
  - NAUSEA [None]
  - OESOPHAGEAL PAIN [None]
